FAERS Safety Report 10075426 (Version 2)
Quarter: 2014Q2

REPORT INFORMATION
  Report Type: Spontaneous
  Country: US (occurrence: US)
  Receive Date: 20140414
  Receipt Date: 20140414
  Transmission Date: 20141212
  Serious: No
  Sender: FDA-Public Use
  Company Number: US-BAYER-2014-038700

PATIENT
  Sex: Female

DRUGS (7)
  1. BETASERON [Suspect]
     Dosage: 1 ML, QOD
     Route: 058
     Dates: end: 2011
  2. IBUPROFEN [Concomitant]
  3. LEXAPRO [Concomitant]
  4. XANAX [Concomitant]
  5. ASPIRIN LOW [Concomitant]
  6. ONDANSETRON [Concomitant]
  7. BACLOFEN [Concomitant]

REACTIONS (1)
  - Drug ineffective [None]
